FAERS Safety Report 7294690-6 (Version None)
Quarter: 2011Q1

REPORT INFORMATION
  Report Type: 
  Country: None (occurrence: None)
  Receive Date: 20110216
  Receipt Date: 20110209
  Transmission Date: 20110831
  Serious: Yes (Other)
  Sender: FDA-Public Use
  Company Number: GB-PFIZER INC-2010152910

PATIENT
  Sex: Female
  Weight: 61 kg

DRUGS (1)
  1. DEPO-PROVERA [Suspect]
     Indication: CONTRACEPTION
     Dosage: 150 MG, EVERY 3 MONTHS
     Route: 030
     Dates: start: 20101115

REACTIONS (10)
  - PAIN IN EXTREMITY [None]
  - INJECTION SITE PAIN [None]
  - SCRATCH [None]
  - PRODUCT QUALITY ISSUE [None]
  - MALAISE [None]
  - FEELING OF BODY TEMPERATURE CHANGE [None]
  - FLUSHING [None]
  - HEADACHE [None]
  - TREMOR [None]
  - DIZZINESS [None]
